FAERS Safety Report 18071253 (Version 1)
Quarter: 2020Q3

REPORT INFORMATION
  Report Type: Spontaneous
  Country: US (occurrence: US)
  Receive Date: 20200727
  Receipt Date: 20200727
  Transmission Date: 20201103
  Serious: Yes (Hospitalization, Other)
  Sender: FDA-Public Use
  Company Number: US-LUPIN PHARMACEUTICALS INC.-2020-03815

PATIENT
  Age: 66 Year
  Sex: Male

DRUGS (8)
  1. CYCLOPHOSPHAMIDE. [Suspect]
     Active Substance: CYCLOPHOSPHAMIDE
     Indication: RETINAL VASCULITIS
     Dosage: 1 GRAM IN TOTAL
     Route: 065
  2. PREDNISONE. [Suspect]
     Active Substance: PREDNISONE
     Indication: RETINAL VASCULITIS
     Dosage: 60 MILLIGRAM, UNK (RESTARTED)
     Route: 048
  3. VALACICLOVIR [Concomitant]
     Active Substance: VALACYCLOVIR HYDROCHLORIDE
     Indication: PRODUCT USED FOR UNKNOWN INDICATION
     Dosage: UNK (DISCONTINUED)
     Route: 048
  4. ASPIRINE [Concomitant]
     Active Substance: ASPIRIN
     Indication: PRODUCT USED FOR UNKNOWN INDICATION
     Dosage: 325 MILLIGRAM, UNK
     Route: 065
  5. DEXAMETHASONE. [Suspect]
     Active Substance: DEXAMETHASONE
     Indication: RETINAL VASCULITIS
     Dosage: UNK
  6. METHYLPREDNISOLONE. [Suspect]
     Active Substance: METHYLPREDNISOLONE
     Indication: RETINAL VASCULITIS
     Dosage: UNK
     Route: 042
  7. ADALIMUMAB [Concomitant]
     Active Substance: ADALIMUMAB
     Indication: RETINAL VASCULITIS
     Dosage: UNK, EVERY 1 WEEK
     Route: 065
  8. PREDNISONE. [Suspect]
     Active Substance: PREDNISONE
     Indication: ASTHMA
     Dosage: 40 MILLIGRAM, QD
     Route: 048

REACTIONS (2)
  - Ocular lymphoma [Recovered/Resolved]
  - Drug ineffective [Unknown]
